FAERS Safety Report 16666475 (Version 1)
Quarter: 2019Q3

REPORT INFORMATION
  Report Type: Report from Study
  Country: DE (occurrence: DE)
  Receive Date: 20190805
  Receipt Date: 20190805
  Transmission Date: 20191004
  Serious: Yes (Disabling)
  Sender: FDA-Public Use
  Company Number: DE-TEVA-2019-DE-1086325

PATIENT
  Age: 23 Year
  Sex: Male

DRUGS (2)
  1. COPAXONE [Suspect]
     Active Substance: GLATIRAMER ACETATE
     Indication: MULTIPLE SCLEROSIS
     Dates: start: 20170508, end: 20190726
  2. LAMOTRIGINE. [Concomitant]
     Active Substance: LAMOTRIGINE

REACTIONS (8)
  - Injection site pain [Unknown]
  - Pain [Unknown]
  - Movement disorder [Unknown]
  - Gait disturbance [Unknown]
  - Injection site induration [Recovering/Resolving]
  - Injection site erythema [Recovering/Resolving]
  - Injection site nerve damage [Unknown]
  - Injection site haematoma [Unknown]

NARRATIVE: CASE EVENT DATE: 2019
